FAERS Safety Report 7524562-0 (Version None)
Quarter: 2011Q2

REPORT INFORMATION
  Report Type: 
  Country: None (occurrence: None)
  Receive Date: 20110606
  Receipt Date: 20110527
  Transmission Date: 20111010
  Serious: Yes (Hospitalization, Other)
  Sender: FDA-Public Use
  Company Number: US-US-EMD SERONO, INC.-7034580

PATIENT
  Sex: Female
  Weight: 109 kg

DRUGS (2)
  1. DIFLUCAN [Concomitant]
  2. REBIF [Suspect]
     Indication: MULTIPLE SCLEROSIS
     Route: 058
     Dates: start: 20091228

REACTIONS (6)
  - ABSCESS ORAL [None]
  - SOFT TISSUE DISORDER [None]
  - ANAPHYLACTIC SHOCK [None]
  - FUNGAL INFECTION [None]
  - LOCALISED INFECTION [None]
  - INJECTION SITE ERYTHEMA [None]
